FAERS Safety Report 8838318 (Version 3)
Quarter: 2013Q1

REPORT INFORMATION
  Report Type: Spontaneous
  Country: US (occurrence: US)
  Receive Date: 20121012
  Receipt Date: 20130211
  Transmission Date: 20140127
  Serious: Yes (Hospitalization)
  Sender: FDA-Public Use
  Company Number: US-GLAXOSMITHKLINE-A0996484A

PATIENT
  Age: 69 Year
  Sex: Female

DRUGS (6)
  1. ADVAIR [Suspect]
     Indication: ASTHMA
     Route: 055
     Dates: start: 2003
  2. ZOFRAN [Suspect]
     Indication: NAUSEA
     Route: 065
     Dates: start: 201208, end: 201208
  3. DIOVAN [Concomitant]
  4. VENTOLIN HFA [Concomitant]
     Route: 055
  5. EMETROL [Concomitant]
  6. PREDNISONE [Concomitant]

REACTIONS (12)
  - Dyspnoea [Unknown]
  - Wheezing [Unknown]
  - Rash [Recovered/Resolved]
  - Arthralgia [Not Recovered/Not Resolved]
  - Pain [Not Recovered/Not Resolved]
  - Nausea [Not Recovered/Not Resolved]
  - Inhalation therapy [Not Recovered/Not Resolved]
  - Panic attack [Not Recovered/Not Resolved]
  - Tremor [Not Recovered/Not Resolved]
  - Nervousness [Not Recovered/Not Resolved]
  - Drug ineffective [Recovered/Resolved]
  - Product quality issue [Unknown]
